FAERS Safety Report 9363567 (Version 2)
Quarter: 2013Q3

REPORT INFORMATION
  Report Type: Spontaneous
  Country: JP (occurrence: JP)
  Receive Date: 20130624
  Receipt Date: 20130725
  Transmission Date: 20140515
  Serious: No
  Sender: FDA-Public Use
  Company Number: PHHY2013JP063819

PATIENT
  Age: 7 Year
  Sex: Female

DRUGS (2)
  1. NEORAL [Suspect]
     Indication: NEPHROTIC SYNDROME
     Dosage: 2 MG/ML, IN TWO DIVIDED DOSE
     Route: 048
     Dates: start: 201006
  2. CORTICOSTEROID NOS [Suspect]
     Indication: NEPHROPATHY
     Route: 048

REACTIONS (1)
  - Skin discolouration [Not Recovered/Not Resolved]
